FAERS Safety Report 4478222-3 (Version None)
Quarter: 2004Q4

REPORT INFORMATION
  Report Type: 
  Country: None (occurrence: None)
  Receive Date: 20041018
  Receipt Date: 20041018
  Transmission Date: 20050328
  Serious: Yes (Hospitalization)
  Sender: FDA-Public Use
  Company Number: None

PATIENT
  Sex: Male

DRUGS (10)
  1. CELECOXIB [Suspect]
     Dosage: ATHHRITIS
  2. WARFARIN [Suspect]
     Dosage: DVT
  3. METOPROLOL FOR HPTN 25 BID [Suspect]
  4. CARVEDILOL [Concomitant]
  5. LASIX [Concomitant]
  6. LISINOPRIL [Concomitant]
  7. ISORDIL [Concomitant]
  8. DOCUSATE [Concomitant]
  9. SIMVASTATIN [Concomitant]
  10. INSULIN [Concomitant]

REACTIONS (4)
  - ASTHENIA [None]
  - BRADYCARDIA [None]
  - GASTROINTESTINAL HAEMORRHAGE [None]
  - MELAENA [None]
